FAERS Safety Report 6121365-9 (Version None)
Quarter: 2009Q1

REPORT INFORMATION
  Report Type: 
  Country: None (occurrence: None)
  Receive Date: 20090317
  Receipt Date: 20090306
  Transmission Date: 20090719
  Serious: Yes (Hospitalization, Other)
  Sender: FDA-Public Use
  Company Number: US-MERCK-0809USA03568

PATIENT
  Age: 55 Year
  Sex: Female

DRUGS (2)
  1. FOSAMAX [Suspect]
     Indication: POSTMENOPAUSE
     Route: 048
     Dates: start: 20000101
  2. ZOMETA [Concomitant]
     Route: 065
     Dates: start: 20000101

REACTIONS (7)
  - ANXIETY [None]
  - ARTHROPATHY [None]
  - BLOOD CHOLESTEROL INCREASED [None]
  - DEPRESSION [None]
  - HYPERTENSION [None]
  - OSTEONECROSIS [None]
  - SINUS DISORDER [None]
